FAERS Safety Report 6658759-9 (Version None)
Quarter: 2010Q1

REPORT INFORMATION
  Report Type: 
  Country: None (occurrence: None)
  Receive Date: 20100325
  Receipt Date: 20100310
  Transmission Date: 20100710
  Serious: Yes (Death, Hospitalization)
  Sender: FDA-Public Use
  Company Number: 2009BI024413

PATIENT
  Age: 65 Year
  Sex: Male

DRUGS (9)
  1. ZEVALIN [Suspect]
     Indication: B-CELL LYMPHOMA
     Dosage: 630 MBQ; 1X; IV
     Route: 042
     Dates: start: 20090303, end: 20090310
  2. RITUXAN [Concomitant]
  3. LOXONIN [Concomitant]
  4. COTRIM [Concomitant]
  5. DIFLUCAN [Concomitant]
  6. POLARAMINE [Concomitant]
  7. RITUXIMAB [Concomitant]
  8. FLUDARA [Concomitant]
  9. FLUDEOXYGLUCOSE [Concomitant]

REACTIONS (9)
  - BONE MARROW FAILURE [None]
  - COMA [None]
  - CONDITION AGGRAVATED [None]
  - NASOPHARYNGITIS [None]
  - PHARYNGITIS [None]
  - PNEUMONIA [None]
  - PSEUDOMONAS INFECTION [None]
  - SEPTIC SHOCK [None]
  - SINUSITIS [None]
